FAERS Safety Report 5742280-6 (Version None)
Quarter: 2008Q2

REPORT INFORMATION
  Report Type: 
  Country: None (occurrence: None)
  Receive Date: 20080519
  Receipt Date: 20080513
  Transmission Date: 20081010
  Serious: Yes (Other)
  Sender: FDA-Public Use
  Company Number: PHBS2008NL03604

PATIENT

DRUGS (2)
  1. DIOVAN HCT [Suspect]
     Indication: CARDIAC FAILURE
     Route: 048
  2. RASILEZ [Suspect]
     Indication: CARDIAC FAILURE

REACTIONS (3)
  - BRAIN NATRIURETIC PEPTIDE INCREASED [None]
  - HYPONATRAEMIA [None]
  - WEIGHT DECREASED [None]
